FAERS Safety Report 12323610 (Version 4)
Quarter: 2016Q2

REPORT INFORMATION
  Report Type: Spontaneous
  Country: MX (occurrence: MX)
  Receive Date: 20160502
  Receipt Date: 20160624
  Transmission Date: 20160815
  Serious: Yes (Other)
  Sender: FDA-Public Use
  Company Number: MX-SLOAN PHARMA-USW201604-000318

PATIENT
  Age: 74 Year
  Sex: Female

DRUGS (7)
  1. TRIMEBUTINE [Concomitant]
     Active Substance: TRIMEBUTINE
     Dates: start: 201602
  2. TEGASEROD [Suspect]
     Active Substance: TEGASEROD
     Indication: GASTROINTESTINAL MOTILITY DISORDER
  3. TEGASEROD [Suspect]
     Active Substance: TEGASEROD
     Indication: BOWEL MOVEMENT IRREGULARITY
     Dates: start: 201601
  4. TEGASEROD [Suspect]
     Active Substance: TEGASEROD
     Indication: DYSPEPSIA
  5. TAFIL [Concomitant]
     Active Substance: ALPRAZOLAM
  6. DEBRIDACE [Concomitant]
  7. DEBRIDAT//TRIMEBUTINE MALEATE [Concomitant]
     Dates: start: 201602

REACTIONS (3)
  - Wrong technique in product usage process [Unknown]
  - Oesophageal achalasia [Not Recovered/Not Resolved]
  - Dysphagia [Recovering/Resolving]

NARRATIVE: CASE EVENT DATE: 201601
